FAERS Safety Report 24722812 (Version 1)
Quarter: 2024Q4

REPORT INFORMATION
  Report Type: Spontaneous
  Country: US (occurrence: US)
  Receive Date: 20241211
  Receipt Date: 20241211
  Transmission Date: 20250115
  Serious: No
  Sender: AMGEN
  Company Number: US-AMGEN-USASP2024242703

PATIENT
  Age: 41 Year
  Sex: Male

DRUGS (1)
  1. PREDNISONE [Suspect]
     Active Substance: PREDNISONE
     Indication: Thyroiditis
     Dosage: UNK (TAPER)
     Route: 065

REACTIONS (2)
  - Joint stiffness [Unknown]
  - Palpitations [Unknown]
